FAERS Safety Report 14378372 (Version 2)
Quarter: 2018Q2

REPORT INFORMATION
  Report Type: Spontaneous
  Country: GB (occurrence: GB)
  Receive Date: 20180111
  Receipt Date: 20180509
  Transmission Date: 20180711
  Serious: Yes (Death)
  Sender: FDA-Public Use
  Company Number: GB-009507513-1801GBR000568

PATIENT
  Age: 37 Year
  Sex: Female

DRUGS (3)
  1. IMPLANON [Suspect]
     Active Substance: ETONOGESTREL
     Indication: CONTRACEPTION
     Dosage: UNK
     Dates: start: 2008
  2. ESCITALOPRAM [Concomitant]
     Active Substance: ESCITALOPRAM OXALATE
     Indication: DEPRESSION
     Dosage: UNK
  3. NEXPLANON [Suspect]
     Active Substance: ETONOGESTREL
     Indication: CONTRACEPTION
     Dosage: UNK

REACTIONS (4)
  - Vaginal haemorrhage [Recovered/Resolved]
  - Implant site haemorrhage [Recovered/Resolved]
  - Thrombosis [Fatal]
  - Lung neoplasm malignant [Not Recovered/Not Resolved]
